FAERS Safety Report 4617804-2 (Version None)
Quarter: 2005Q1

REPORT INFORMATION
  Report Type: 
  Country: None (occurrence: None)
  Receive Date: 20050322
  Receipt Date: 20050309
  Transmission Date: 20050727
  Serious: Yes (Other)
  Sender: FDA-Public Use
  Company Number: 2005042575

PATIENT
  Age: 76 Year
  Sex: Male

DRUGS (5)
  1. CABERGOLINE [Suspect]
     Indication: PARKINSON'S DISEASE
     Dosage: 1 MG (1 MG, 1 IN 1 D), ORAL
     Route: 048
     Dates: start: 20040901, end: 20041220
  2. CARBIDOPA/ENTACAPONE/LEVODOPA (CARBIDOPA, , ENTACAPONE, LEVODOPA) [Suspect]
     Indication: PARKINSON'S DISEASE
     Dosage: 112.5/600/450 MG (3 IN 1 D), ORAL
     Route: 048
     Dates: start: 20041001, end: 20041220
  3. LEBOCAR (CARBIDOPA, LEVODOPA) [Concomitant]
     Indication: PARKINSON'S DISEASE
     Dosage: (3 IN 1 D), ORAL
     Route: 048
     Dates: start: 20041001, end: 20041220
  4. CARBEGOLINE (CARBEGOLINE) [Concomitant]
  5. CARBIDOPA/ENTACAPONE/LEVODOPA (CARBIDOPA, ENTACAPONE, LEVODOPA) [Concomitant]

REACTIONS (2)
  - HALLUCINATION [None]
  - PSYCHOTIC DISORDER [None]
